FAERS Safety Report 5115430-2 (Version None)
Quarter: 2006Q3

REPORT INFORMATION
  Report Type: 
  Country: None (occurrence: None)
  Receive Date: 20060922
  Receipt Date: 20060915
  Transmission Date: 20061208
  Serious: Yes (Death, Hospitalization, Other)
  Sender: FDA-Public Use
  Company Number: 430008M06FRA

PATIENT
  Age: 51 Year
  Sex: Male

DRUGS (14)
  1. NOVANTRONE [Suspect]
     Indication: ACUTE LYMPHOCYTIC LEUKAEMIA
     Dosage: INTRAVENOUS
     Route: 042
     Dates: start: 20050223, end: 20050318
  2. CYTARABINE [Suspect]
     Indication: ACUTE LYMPHOCYTIC LEUKAEMIA
     Dosage: SEE IMAGE, OTHER
     Route: 050
     Dates: start: 20050301, end: 20050301
  3. CYTARABINE [Suspect]
     Indication: ACUTE LYMPHOCYTIC LEUKAEMIA
     Dosage: SEE IMAGE, OTHER
     Route: 050
     Dates: start: 20050601, end: 20050601
  4. METHOTREXATE [Suspect]
     Indication: PROPHYLAXIS AGAINST TRANSPLANT REJECTION
     Dosage: SEE IMAGE
     Route: 037
     Dates: start: 20050301, end: 20050301
  5. METHOTREXATE [Suspect]
     Indication: PROPHYLAXIS AGAINST TRANSPLANT REJECTION
     Dosage: SEE IMAGE
     Route: 037
     Dates: start: 20050501, end: 20050501
  6. METHOTREXATE [Suspect]
     Indication: PROPHYLAXIS AGAINST TRANSPLANT REJECTION
     Dosage: SEE IMAGE
     Route: 037
     Dates: start: 20050623, end: 20050629
  7. NEORAL [Suspect]
     Indication: PROPHYLAXIS AGAINST TRANSPLANT REJECTION
     Dosage: 400 MG, 1 IN 1 DAYS, ORAL
     Route: 048
     Dates: start: 20050630, end: 20051103
  8. ONCOVIN [Suspect]
     Indication: ACUTE LYMPHOCYTIC LEUKAEMIA
     Dosage: SEE IMAGE
     Dates: start: 20050501, end: 20050501
  9. ONCOVIN [Suspect]
     Indication: ACUTE LYMPHOCYTIC LEUKAEMIA
     Dosage: SEE IMAGE
     Dates: start: 20050601, end: 20050601
  10. DEPO-MEDROL [Concomitant]
  11. ELSPAR [Concomitant]
  12. CYCLOPHOSPHAMIDE [Concomitant]
  13. CELLCEPT [Concomitant]
  14. DIAMICRON (GLICLAZIDE) [Concomitant]

REACTIONS (29)
  - AMYOTROPHY [None]
  - ASTHENIA [None]
  - BALANCE DISORDER [None]
  - BONE MARROW TRANSPLANT [None]
  - CANDIDIASIS [None]
  - CITROBACTER INFECTION [None]
  - COORDINATION ABNORMAL [None]
  - CYTOMEGALOVIRUS INFECTION [None]
  - GAIT DISTURBANCE [None]
  - GRAND MAL CONVULSION [None]
  - HYPERTHYROIDISM [None]
  - INFECTION [None]
  - LEUKOENCEPHALOPATHY [None]
  - MALNUTRITION [None]
  - MEDIASTINAL MASS [None]
  - MUSCLE CONTRACTIONS INVOLUNTARY [None]
  - MUSCLE DISORDER [None]
  - MYOCLONUS [None]
  - MYOKYMIA [None]
  - PAIN IN EXTREMITY [None]
  - PANCYTOPENIA [None]
  - POLYNEUROPATHY [None]
  - RENAL IMPAIRMENT [None]
  - SEPTIC SHOCK [None]
  - STAPHYLOCOCCAL INFECTION [None]
  - STAPHYLOCOCCAL SEPSIS [None]
  - THYMOMA [None]
  - TREMOR [None]
  - WEIGHT DECREASED [None]
